FAERS Safety Report 9978898 (Version 1)
Quarter: 2014Q1

REPORT INFORMATION
  Report Type: Report from Study
  Country: US (occurrence: US)
  Receive Date: 20140306
  Receipt Date: 20140306
  Transmission Date: 20141002
  Serious: No
  Sender: FDA-Public Use
  Company Number: US-ABBVIE-13P-163-1168983-00

PATIENT
  Age: 45 Year
  Sex: Female

DRUGS (4)
  1. HUMIRA [Suspect]
     Indication: CROHN^S DISEASE
     Dates: start: 20130915
  2. POTASSIUM [Concomitant]
     Indication: MINERAL SUPPLEMENTATION
  3. TRAMADOL [Concomitant]
     Indication: ABDOMINAL PAIN
  4. TRAMADOL [Concomitant]
     Indication: PROCTALGIA

REACTIONS (7)
  - Balance disorder [Not Recovered/Not Resolved]
  - Renal pain [Not Recovered/Not Resolved]
  - Pollakiuria [Not Recovered/Not Resolved]
  - Abdominal pain [Not Recovered/Not Resolved]
  - Contusion [Not Recovered/Not Resolved]
  - Back pain [Not Recovered/Not Resolved]
  - Fall [Not Recovered/Not Resolved]
